FAERS Safety Report 5451168-X (Version None)
Quarter: 2007Q3

REPORT INFORMATION
  Report Type: 
  Country: None (occurrence: None)
  Receive Date: 20070802
  Receipt Date: 20070322
  Transmission Date: 20080115
  Serious: Yes (Other)
  Sender: FDA-Public Use
  Company Number: 2007024094

PATIENT
  Sex: Male

DRUGS (4)
  1. CAMPTOSAR [Suspect]
  2. AVASTIN [Concomitant]
  3. FLUOROURACIL [Concomitant]
  4. LEUCOVORIN CALCIUM [Concomitant]

REACTIONS (2)
  - BLOOD ELECTROLYTES DECREASED [None]
  - DIARRHOEA [None]
